FAERS Safety Report 10776428 (Version 2)
Quarter: 2015Q1

REPORT INFORMATION
  Report Type: Spontaneous
  Country: US (occurrence: US)
  Receive Date: 20150209
  Receipt Date: 20150211
  Transmission Date: 20150721
  Serious: No
  Sender: FDA-Public Use
  Company Number: US-BAYER-2015-008754

PATIENT
  Age: 51 Year
  Sex: Male

DRUGS (2)
  1. IBUPROFEN L [Concomitant]
     Indication: HEADACHE
  2. LEVITRA [Suspect]
     Active Substance: VARDENAFIL HYDROCHLORIDE TRIHYDRATE
     Indication: ERECTILE DYSFUNCTION
     Dosage: UNK
     Route: 048
     Dates: start: 2014, end: 20150108

REACTIONS (4)
  - Product quality issue [None]
  - Drug ineffective [None]
  - Drug ineffective [None]
  - Drug ineffective [None]

NARRATIVE: CASE EVENT DATE: 20141228
